FAERS Safety Report 4596837-9 (Version None)
Quarter: 2005Q1

REPORT INFORMATION
  Report Type: 
  Country: None (occurrence: None)
  Receive Date: 20050225
  Receipt Date: 20050218
  Transmission Date: 20050727
  Serious: Yes (Hospitalization)
  Sender: FDA-Public Use
  Company Number: KII-2005-0015263

PATIENT
  Age: 58 Year
  Sex: Female

DRUGS (10)
  1. MORPHINE SULFATE [Suspect]
     Indication: PAIN
     Dosage: PRN, ORAL
     Route: 048
  2. HYDROMORPHONE HCL [Suspect]
     Indication: PAIN
     Dosage: PRN, ORAL
     Route: 048
  3. GABAPENTIN [Suspect]
     Dosage: ORAL
     Route: 048
  4. HYPNOTICS AND SEDATIVES() [Suspect]
     Dosage: ORAL
     Route: 048
  5. ANTIBIOTICS [Concomitant]
  6. INSULIN [Concomitant]
  7. SERUM LIPID REDUCING AGENTS [Concomitant]
  8. ANTIPLATELET [Concomitant]
  9. ASPIRIN [Concomitant]
  10. CEFOXITIN (CEFOXITIN) [Concomitant]

REACTIONS (10)
  - BLOOD CREATINE INCREASED [None]
  - BLOOD PRESSURE DECREASED [None]
  - BLOOD UREA INCREASED [None]
  - DEPRESSED LEVEL OF CONSCIOUSNESS [None]
  - DISORIENTATION [None]
  - FEELING ABNORMAL [None]
  - INFECTION [None]
  - LETHARGY [None]
  - MEDICATION ERROR [None]
  - MYOCLONUS [None]
